FAERS Safety Report 9304360 (Version 3)
Quarter: 2013Q3

REPORT INFORMATION
  Report Type: Report from Study
  Country: US (occurrence: US)
  Receive Date: 20130522
  Receipt Date: 20130813
  Transmission Date: 20140515
  Serious: Yes (Other)
  Sender: FDA-Public Use
  Company Number: US-US-EMD SERONO, INC.-7211891

PATIENT
  Sex: Female

DRUGS (2)
  1. REBIF [Suspect]
     Indication: MULTIPLE SCLEROSIS
     Route: 058
     Dates: end: 201211
  2. REBIF [Suspect]
     Route: 058
     Dates: start: 201304

REACTIONS (2)
  - Ovarian cancer stage I [Recovered/Resolved]
  - Headache [Unknown]
